FAERS Safety Report 24780950 (Version 3)
Quarter: 2025Q1

REPORT INFORMATION
  Report Type: Spontaneous
  Country: US (occurrence: US)
  Receive Date: 20241227
  Receipt Date: 20250307
  Transmission Date: 20250408
  Serious: Yes (Other)
  Sender: ALEXION PHARMACEUTICALS
  Company Number: US-AstraZeneca-CH-00773758AP

PATIENT

DRUGS (2)
  1. BYETTA [Suspect]
     Active Substance: EXENATIDE
     Dosage: 2.4 MILLILITER, BID
     Route: 065
  2. BYDUREON [Suspect]
     Active Substance: EXENATIDE
     Route: 065

REACTIONS (7)
  - Device loosening [Unknown]
  - Blood glucose abnormal [Unknown]
  - Injection site reaction [Unknown]
  - Illness [Unknown]
  - Dyspepsia [Unknown]
  - Nausea [Unknown]
  - Incorrect dose administered [Unknown]
